FAERS Safety Report 23192914 (Version 1)
Quarter: 2023Q4

REPORT INFORMATION
  Report Type: Spontaneous
  Country: US (occurrence: US)
  Receive Date: 20231116
  Receipt Date: 20231116
  Transmission Date: 20240110
  Serious: No
  Sender: FDA-Public Use
  Company Number: US-SA-SAC20231114000753

PATIENT
  Age: 24 Year
  Sex: Female

DRUGS (1)
  1. DUPIXENT [Suspect]
     Active Substance: DUPILUMAB
     Indication: Fungal skin infection
     Dosage: 600 MG, 1X
     Route: 058
     Dates: start: 202310, end: 2023

REACTIONS (5)
  - Loss of personal independence in daily activities [Unknown]
  - Somnolence [Unknown]
  - Fatigue [Unknown]
  - Injection site pain [Unknown]
  - Product prescribing issue [Unknown]

NARRATIVE: CASE EVENT DATE: 20230101
